FAERS Safety Report 4851843-1 (Version None)
Quarter: 2005Q4

REPORT INFORMATION
  Report Type: 
  Country: None (occurrence: None)
  Receive Date: 20051125
  Receipt Date: 20041221
  Transmission Date: 20060501
  Serious: Yes (Hospitalization, Other)
  Sender: FDA-Public Use
  Company Number: 2004090799

PATIENT
  Sex: Male
  Weight: 106.5953 kg

DRUGS (4)
  1. TIKOSYN [Suspect]
     Indication: ATRIAL FIBRILLATION
     Dosage: 500 MCG (250 MCG, 2 IN 1 D),ORAL
     Route: 048
     Dates: start: 20031101, end: 20040801
  2. TELMISARTAN (TELMISARTAN) [Concomitant]
  3. ATORVASTATIN CALCIUM [Concomitant]
  4. WARFARIN (WARFARIN) [Concomitant]

REACTIONS (3)
  - ATRIAL FIBRILLATION [None]
  - CARDIAC FIBRILLATION [None]
  - DRUG INEFFECTIVE [None]
